FAERS Safety Report 15838506 (Version 1)
Quarter: 2019Q1

REPORT INFORMATION
  Report Type: Spontaneous
  Country: US (occurrence: US)
  Receive Date: 20190117
  Receipt Date: 20190117
  Transmission Date: 20190417
  Serious: No
  Sender: FDA-Public Use
  Company Number: US-BAYER-2019-007866

PATIENT
  Sex: Female

DRUGS (1)
  1. MIRALAX [Suspect]
     Active Substance: POLYETHYLENE GLYCOL 3350
     Indication: GASTROINTESTINAL DISORDER
     Dosage: 17 G, BID
     Route: 048
     Dates: start: 20181203

REACTIONS (4)
  - Diarrhoea [Not Recovered/Not Resolved]
  - Abdominal distension [Unknown]
  - Muscle spasms [Unknown]
  - Malaise [Unknown]

NARRATIVE: CASE EVENT DATE: 20181204
